FAERS Safety Report 11180186 (Version 1)
Quarter: 2015Q2

REPORT INFORMATION
  Report Type: Spontaneous
  Country: US (occurrence: US)
  Receive Date: 20150611
  Receipt Date: 20150611
  Transmission Date: 20150821
  Serious: Yes (Other)
  Sender: FDA-Public Use
  Company Number: US-BAYER-2015-296574

PATIENT
  Age: 20 Year
  Sex: Female

DRUGS (1)
  1. SKYLA [Suspect]
     Active Substance: LEVONORGESTREL
     Indication: CONTRACEPTION
     Dosage: 14 MCG/24HR, CONT
     Route: 015
     Dates: start: 201310

REACTIONS (7)
  - Cushing^s syndrome [None]
  - Abnormal weight gain [None]
  - Fluid retention [None]
  - Renal disorder [None]
  - Hydroxycorticosteroids increased [None]
  - Swelling face [None]
  - Blood creatinine increased [None]

NARRATIVE: CASE EVENT DATE: 201505
